FAERS Safety Report 7994029-4 (Version None)
Quarter: 2011Q4

REPORT INFORMATION
  Report Type: 
  Country: None (occurrence: None)
  Receive Date: 20111220
  Receipt Date: 20111210
  Transmission Date: 20120403
  Serious: No
  Sender: FDA-Public Use
  Company Number: PHEH2011US009740

PATIENT
  Sex: Female

DRUGS (8)
  1. TASIGNA [Suspect]
     Indication: CHRONIC LYMPHOCYTIC LEUKAEMIA
     Dosage: 400 MG, BID
  2. CEFDINIR [Suspect]
     Dosage: 300 MG, Q12H
  3. TRAMADOL HCL [Concomitant]
     Dosage: 50 MG, Q4H
  4. BENZONATATE [Concomitant]
     Indication: NASOPHARYNGITIS
     Dosage: 200 MG, TID
     Route: 045
  5. CYCLOBENZAPRINE [Concomitant]
     Dosage: 10 MG, Q6H
  6. NASONEX [Concomitant]
     Dosage: UNK UKN, UNK
  7. PROAIR (FLUTICASONE PROPIONATE) [Concomitant]
     Dosage: UNK UKN, UNK
  8. IBUPROFEN [Concomitant]
     Dosage: 800 MG, DAILY

REACTIONS (5)
  - NASOPHARYNGITIS [None]
  - HYPERSENSITIVITY [None]
  - RASH [None]
  - CONTUSION [None]
  - PRURITUS [None]
